FAERS Safety Report 9797886 (Version 2)
Quarter: 2016Q4

REPORT INFORMATION
  Report Type: Report from Study
  Country: GB (occurrence: GB)
  Receive Date: 20140102
  Receipt Date: 20161116
  Transmission Date: 20170207
  Serious: Yes (Death, Hospitalization)
  Sender: FDA-Public Use
  Company Number: AMAG201300249

PATIENT
  Age: 68 Year
  Sex: Male

DRUGS (2)
  1. BUSCOPAN [Concomitant]
     Active Substance: BUTYLSCOPOLAMINE BROMIDE
     Indication: PRODUCT USED FOR UNKNOWN INDICATION
     Dosage: 20 MG, UNK
     Route: 042
     Dates: start: 20130724, end: 20130725
  2. RIENSO [Suspect]
     Active Substance: FERUMOXYTOL
     Indication: IMAGING PROCEDURE
     Dosage: 13.6 ML, (408 MG) SINGLE
     Route: 042
     Dates: start: 20130724, end: 20130724

REACTIONS (1)
  - Transitional cell carcinoma [Fatal]

NARRATIVE: CASE EVENT DATE: 20131016
